FAERS Safety Report 9775341 (Version 1)
Quarter: 2013Q4

REPORT INFORMATION
  Report Type: Spontaneous
  Country: US (occurrence: US)
  Receive Date: 20131220
  Receipt Date: 20131220
  Transmission Date: 20140711
  Serious: No
  Sender: FDA-Public Use
  Company Number: US-GALDERMA-US13003160

PATIENT
  Age: 52 Year
  Sex: Male

DRUGS (5)
  1. MIRVASO (BRIMONIDINE) TOPICAL GEL, 0.33% [Suspect]
     Indication: ROSACEA
     Dosage: 0.33%
     Route: 061
     Dates: start: 201309, end: 20131104
  2. UNKNOWN SUNSCREEN [Concomitant]
     Indication: PROPHYLAXIS AGAINST SOLAR RADIATION
     Route: 061
  3. AVENE SUNSCREEN WITH CALMING EFFECT [Concomitant]
     Indication: ROSACEA
     Route: 061
     Dates: start: 201309
  4. AVENE SUNSCREEN WITH CALMING EFFECT [Concomitant]
     Indication: PROPHYLAXIS AGAINST SOLAR RADIATION
  5. XANAX (ALPRAZOLAM) [Concomitant]
     Indication: ANXIETY
     Route: 048

REACTIONS (3)
  - Condition aggravated [Not Recovered/Not Resolved]
  - Feeling cold [Unknown]
  - Erythema [Recovering/Resolving]
